FAERS Safety Report 6168840-9 (Version None)
Quarter: 2009Q2

REPORT INFORMATION
  Report Type: 
  Country: None (occurrence: None)
  Receive Date: 20090424
  Receipt Date: 20090424
  Transmission Date: 20091009
  Serious: Yes (Hospitalization)
  Sender: FDA-Public Use
  Company Number: None

PATIENT
  Sex: Male
  Weight: 86.5 kg

DRUGS (2)
  1. BUSULFAN [Suspect]
     Dosage: 528 MG
  2. FLUDARABINE PHOSPHATE [Suspect]
     Dosage: 290 MG

REACTIONS (8)
  - ANXIETY [None]
  - APNOEA [None]
  - DIALYSIS [None]
  - FLUID OVERLOAD [None]
  - HYPOXIA [None]
  - IDIOPATHIC THROMBOCYTOPENIC PURPURA [None]
  - PNEUMOTHORAX [None]
  - RENAL FAILURE ACUTE [None]
